FAERS Safety Report 26085860 (Version 2)
Quarter: 2025Q4

REPORT INFORMATION
  Report Type: Report from Study
  Country: EU (occurrence: EU)
  Receive Date: 20251125
  Receipt Date: 20251203
  Transmission Date: 20260117
  Serious: Yes (Other)
  Sender: MERZ
  Company Number: EU-MERZ PHARMACEUTICALS LLC-ACO_179814_2025

PATIENT

DRUGS (8)
  1. INBRIJA [Suspect]
     Active Substance: LEVODOPA
     Indication: Parkinsonian crisis
     Dosage: 33 MILLIGRAM, PRN
     Dates: start: 20251109
  2. INBRIJA [Suspect]
     Active Substance: LEVODOPA
     Indication: On and off phenomenon
  3. SINEMET [Concomitant]
     Active Substance: CARBIDOPA\LEVODOPA
     Indication: Product used for unknown indication
     Dosage: (5 TABLETS A DAY) Q3H, (2-1-1-1; LAST AT 17H)
     Route: 065
  4. SINEMET [Concomitant]
     Active Substance: CARBIDOPA\LEVODOPA
     Dosage: UNK, SINEMET RETARD AT 21H
     Route: 065
  5. XADAGO [Concomitant]
     Active Substance: SAFINAMIDE MESYLATE
     Indication: Product used for unknown indication
     Dosage: 1 OF 100 MG AND ANOTHER OF 50 MG, 150 MG/QD.
     Route: 065
  6. OPRIMEA [Concomitant]
     Indication: Product used for unknown indication
     Dosage: 2 EVERY 24 HOURS
     Route: 065
  7. ONGENTYS [Concomitant]
     Active Substance: OPICAPONE
     Indication: Product used for unknown indication
     Dosage: UNK, 1 EVERY 24H (AT NIGHT)
     Route: 065
  8. SERTRALINE [Concomitant]
     Active Substance: SERTRALINE HYDROCHLORIDE
     Indication: Product used for unknown indication
     Dosage: UNK 1 EVERY 24H
     Route: 065

REACTIONS (14)
  - Pulmonary oedema [Unknown]
  - Throat irritation [Unknown]
  - Oesophageal discomfort [Recovered/Resolved]
  - Stress [Unknown]
  - Cough [Recovered/Resolved]
  - Chest pain [Recovered/Resolved]
  - Chest pain [Recovered/Resolved]
  - Treatment noncompliance [Not Recovered/Not Resolved]
  - Drug ineffective [Unknown]
  - Wrong technique in product usage process [Unknown]
  - Incorrect dose administered [Recovered/Resolved]
  - Product use complaint [Unknown]
  - Product cleaning inadequate [Unknown]
  - Device occlusion [Unknown]
